FAERS Safety Report 21318726 (Version 1)
Quarter: 2022Q3

REPORT INFORMATION
  Report Type: Spontaneous
  Country: US (occurrence: US)
  Receive Date: 20220911
  Receipt Date: 20220911
  Transmission Date: 20221027
  Serious: No
  Sender: FDA-Public Use
  Company Number: US-SA-SAC20220831000513

PATIENT
  Age: 35 Year
  Sex: Female
  Weight: 85.2 kg

DRUGS (19)
  1. FABRAZYME [Suspect]
     Active Substance: AGALSIDASE BETA
     Indication: Fabry^s disease
     Dosage: 85 MG, QOW
     Dates: start: 20160512
  2. HEPARIN [Concomitant]
     Active Substance: HEPARIN SODIUM
  3. DIPHENHYDRAMINE HYDROCHLORIDE [Concomitant]
     Active Substance: DIPHENHYDRAMINE HYDROCHLORIDE
  4. ADVIL [Concomitant]
     Active Substance: IBUPROFEN
  5. BACLOFEN [Concomitant]
     Active Substance: BACLOFEN
  6. APPLE CIDER VINEGAR [Concomitant]
     Active Substance: APPLE CIDER VINEGAR
  7. SODIUM CHLORIDE [Concomitant]
     Active Substance: SODIUM CHLORIDE
     Dosage: FLUSH SYRINGE
  8. CARVEDILOL [Concomitant]
     Active Substance: CARVEDILOL
  9. EPINEPHRINE [Concomitant]
     Active Substance: EPINEPHRINE
  10. ACETAMINOPHEN [Concomitant]
     Active Substance: ACETAMINOPHEN
  11. STERILE WATER [Concomitant]
     Active Substance: WATER
  12. NARATRIPTAN HYDROCHLORIDE [Concomitant]
     Active Substance: NARATRIPTAN HYDROCHLORIDE
  13. HYDROCHLOROTHIAZIDE [Concomitant]
     Active Substance: HYDROCHLOROTHIAZIDE
  14. LIDOCAINE [Concomitant]
     Active Substance: LIDOCAINE
  15. TUMS EX [Concomitant]
     Active Substance: CALCIUM CARBONATE
  16. CLINDAMYCIN HYDROCHLORIDE [Concomitant]
     Active Substance: CLINDAMYCIN HYDROCHLORIDE
  17. CODEINE SULFATE [Concomitant]
     Active Substance: CODEINE SULFATE
     Dosage: UNK
  18. BACTRIM DS [Concomitant]
     Active Substance: SULFAMETHOXAZOLE\TRIMETHOPRIM
  19. DIPHENHYDRAMINE [Concomitant]
     Active Substance: DIPHENHYDRAMINE

REACTIONS (2)
  - Fall [Unknown]
  - Pain [Unknown]

NARRATIVE: CASE EVENT DATE: 20220801
